FAERS Safety Report 9281236 (Version 2)
Quarter: 2013Q2

REPORT INFORMATION
  Report Type: Spontaneous
  Country: IT (occurrence: IT)
  Receive Date: 20130509
  Receipt Date: 20130517
  Transmission Date: 20140414
  Serious: Yes (Other)
  Sender: FDA-Public Use
  Company Number: IT-JNJFOC-20130501348

PATIENT
  Sex: 0

DRUGS (2)
  1. REACTINE [Suspect]
     Route: 065
  2. REACTINE [Suspect]
     Indication: PRODUCT USED FOR UNKNOWN INDICATION
     Route: 065

REACTIONS (3)
  - Asthma [Unknown]
  - Malaise [Unknown]
  - Drug ineffective [Unknown]
